FAERS Safety Report 17671276 (Version 1)
Quarter: 2020Q2

REPORT INFORMATION
  Report Type: Spontaneous
  Country: DE (occurrence: DE)
  Receive Date: 20200415
  Receipt Date: 20200415
  Transmission Date: 20200713
  Serious: Yes (Congenital Anomaly)
  Sender: FDA-Public Use
  Company Number: DE-OTSUKA-2020_009618

PATIENT
  Sex: Male
  Weight: 3.6 kg

DRUGS (1)
  1. ARIPIPRAZOLE. [Suspect]
     Active Substance: ARIPIPRAZOLE
     Indication: PSYCHOTIC DISORDER
     Dosage: 15 MG, QD
     Route: 064

REACTIONS (3)
  - Epispadias [Not Recovered/Not Resolved]
  - Cloacal exstrophy [Not Recovered/Not Resolved]
  - Foetal exposure during pregnancy [Unknown]
